FAERS Safety Report 5749104-1 (Version None)
Quarter: 2008Q2

REPORT INFORMATION
  Report Type: 
  Country: None (occurrence: None)
  Receive Date: 20080522
  Receipt Date: 20080508
  Transmission Date: 20081010
  Serious: Yes (Death, Hospitalization, Other)
  Sender: FDA-Public Use
  Company Number: 2008US001105

PATIENT
  Age: 66 Year
  Sex: Male

DRUGS (13)
  1. AMBISOME [Suspect]
     Indication: BRONCHOPULMONARY ASPERGILLOSIS
     Dosage: 125 MG, UID/QD, IV NOS
     Route: 042
     Dates: start: 20070823, end: 20070824
  2. LANSOPRAZOLE [Concomitant]
  3. BACTRIM [Concomitant]
  4. DECADRON [Concomitant]
  5. ITRACONAZOLE [Concomitant]
  6. NEORAL [Concomitant]
  7. PROMAC (POLAPREZINC) [Concomitant]
  8. NEU-UP (NARTOGRASTIM) [Concomitant]
  9. VFEND [Concomitant]
  10. URSO 250 [Concomitant]
  11. LASIX [Concomitant]
  12. MILMAG [Concomitant]
  13. CARBENIN (BETAMIPRON, PANIPENEM) [Concomitant]

REACTIONS (6)
  - BLOOD BILIRUBIN INCREASED [None]
  - BLOOD CREATININE INCREASED [None]
  - BLOOD UREA INCREASED [None]
  - HYPOVOLAEMIA [None]
  - PNEUMONIA FUNGAL [None]
  - SEPSIS [None]
